FAERS Safety Report 7597471-9 (Version None)
Quarter: 2011Q3

REPORT INFORMATION
  Report Type: 
  Country: None (occurrence: None)
  Receive Date: 20110708
  Receipt Date: 20110629
  Transmission Date: 20111222
  Serious: Yes (Other)
  Sender: FDA-Public Use
  Company Number: PHHY2011DE58004

PATIENT
  Age: 56 Year
  Sex: Female

DRUGS (3)
  1. CHEMOTHERAPEUTICS NOS [Concomitant]
  2. ZOMETA [Suspect]
     Route: 042
     Dates: start: 20040901, end: 20080101
  3. CORTISONE ACETATE [Concomitant]

REACTIONS (1)
  - OSTEONECROSIS OF JAW [None]
